FAERS Safety Report 25263246 (Version 1)
Quarter: 2025Q2

REPORT INFORMATION
  Report Type: Report from Study
  Country: US (occurrence: US)
  Receive Date: 20250502
  Receipt Date: 20250502
  Transmission Date: 20250716
  Serious: Yes (Other)
  Sender: ACCORD
  Company Number: US-Accord-482615

PATIENT
  Sex: Male

DRUGS (6)
  1. CARBOPLATIN [Suspect]
     Active Substance: CARBOPLATIN
     Indication: Pleural mesothelioma
  2. PEMETREXED [Suspect]
     Active Substance: PEMETREXED
     Indication: Pleural mesothelioma
  3. DURVALUMAB [Suspect]
     Active Substance: DURVALUMAB
     Indication: Pleural mesothelioma
  4. CARBOPLATIN [Suspect]
     Active Substance: CARBOPLATIN
     Indication: Epithelioid mesothelioma
  5. PEMETREXED [Suspect]
     Active Substance: PEMETREXED
     Indication: Epithelioid mesothelioma
  6. DURVALUMAB [Suspect]
     Active Substance: DURVALUMAB
     Indication: Epithelioid mesothelioma

REACTIONS (5)
  - Fatigue [Unknown]
  - Off label use [Unknown]
  - Cardiac failure [Unknown]
  - Aortic stenosis [Unknown]
  - Atrial fibrillation [Unknown]
